FAERS Safety Report 6535735-8 (Version None)
Quarter: 2010Q1

REPORT INFORMATION
  Report Type: 
  Country: None (occurrence: None)
  Receive Date: 20100106
  Receipt Date: 20091222
  Transmission Date: 20100710
  Serious: Yes (Hospitalization)
  Sender: FDA-Public Use
  Company Number: 2009003785

PATIENT
  Age: 69 Year

DRUGS (3)
  1. ERLOTINIB HYDROCHLORIDE [Suspect]
     Indication: NON-SMALL CELL LUNG CANCER
     Dosage: 150 MG, ORAL
     Route: 048
     Dates: start: 20091008
  2. GEMCITABINE [Suspect]
     Indication: NON-SMALL CELL LUNG CANCER
     Dosage: 1200 MG/M2, INTRAVENOUS
     Route: 042
     Dates: start: 20091202
  3. CISPLATIN [Suspect]
     Indication: NON-SMALL CELL LUNG CANCER
     Dosage: 80 MG/M2, 1 PER 3 WEEKS, INTRAVENOUS
     Route: 042
     Dates: start: 20091202

REACTIONS (2)
  - ADRENAL INSUFFICIENCY [None]
  - PULMONARY EMBOLISM [None]
